FAERS Safety Report 23283176 (Version 1)
Quarter: 2023Q4

REPORT INFORMATION
  Report Type: Spontaneous
  Country: US (occurrence: US)
  Receive Date: 20231211
  Receipt Date: 20231211
  Transmission Date: 20240109
  Serious: Yes (Death, Other)
  Sender: FDA-Public Use
  Company Number: US-NORTHSTAR RX LLC-US-2023NSR000410

PATIENT
  Age: 19 Year
  Sex: Female

DRUGS (1)
  1. BACLOFEN [Suspect]
     Active Substance: BACLOFEN
     Indication: Quadriparesis
     Dosage: UNK
     Route: 051
     Dates: start: 2010

REACTIONS (4)
  - Toxicity to various agents [Fatal]
  - Overdose [Fatal]
  - Cardio-respiratory arrest [Fatal]
  - Medication error [Fatal]

NARRATIVE: CASE EVENT DATE: 20210101
